FAERS Safety Report 24610265 (Version 1)
Quarter: 2024Q4

REPORT INFORMATION
  Report Type: Spontaneous
  Country: RO (occurrence: RO)
  Receive Date: 20241112
  Receipt Date: 20241112
  Transmission Date: 20250115
  Serious: Yes (Other)
  Sender: FRESENIUS KABI
  Company Number: RO-009507513-2410ROU011563

PATIENT
  Age: 44 Year

DRUGS (9)
  1. PEMETREXED [Suspect]
     Active Substance: PEMETREXED
     Indication: Lung adenocarcinoma stage IV
     Dosage: UNK, Q3W
     Dates: start: 20210128, end: 20210128
  2. PEMETREXED [Suspect]
     Active Substance: PEMETREXED
     Dosage: UNK, Q3W
     Dates: start: 20210422, end: 20210422
  3. PEMETREXED [Suspect]
     Active Substance: PEMETREXED
     Dosage: UNK, Q3W
     Dates: start: 202307, end: 202307
  4. PEMBROLIZUMAB [Suspect]
     Active Substance: PEMBROLIZUMAB
     Indication: Lung adenocarcinoma stage IV
     Dosage: UNK, Q3W?FOA: SOLUTION FOR INJECTION
     Dates: start: 20210128, end: 20210128
  5. PEMBROLIZUMAB [Suspect]
     Active Substance: PEMBROLIZUMAB
     Dosage: UNK, Q3W?FOA: SOLUTION FOR INJECTION
     Dates: start: 20210422, end: 20210422
  6. PEMBROLIZUMAB [Suspect]
     Active Substance: PEMBROLIZUMAB
     Dosage: UNK, Q3W?FOA: SOLUTION FOR INJECTION
     Dates: start: 202307, end: 202307
  7. PEMBROLIZUMAB [Suspect]
     Active Substance: PEMBROLIZUMAB
     Dosage: UNK, Q3W?FOA: SOLUTION FOR INJECTION
     Dates: start: 20240911, end: 20240911
  8. CISPLATIN [Suspect]
     Active Substance: CISPLATIN
     Indication: Lung adenocarcinoma stage IV
     Dosage: UNK, Q3W
     Dates: start: 20210128, end: 20210128
  9. CISPLATIN [Suspect]
     Active Substance: CISPLATIN
     Dosage: UNK, Q3W
     Dates: start: 20210422, end: 20210422

REACTIONS (16)
  - Hepatic cytolysis [Unknown]
  - Obstructive pancreatitis [Unknown]
  - Bile duct stone [Unknown]
  - Asthenia [Unknown]
  - Blood urea increased [Unknown]
  - General physical health deterioration [Unknown]
  - Hepatic steatosis [Unknown]
  - Cholelithiasis [Unknown]
  - Pulmonary mass [Unknown]
  - Pleural adhesion [Unknown]
  - Biliary cyst [Unknown]
  - Pleural fibrosis [Unknown]
  - Rash [Unknown]
  - Oedema peripheral [Unknown]
  - Pleural effusion [Unknown]
  - Atelectasis [Unknown]

NARRATIVE: CASE EVENT DATE: 20230428
